FAERS Safety Report 4913097-7 (Version None)
Quarter: 2006Q1

REPORT INFORMATION
  Report Type: 
  Country: None (occurrence: None)
  Receive Date: 20060210
  Receipt Date: 20060127
  Transmission Date: 20060701
  Serious: Yes (Death, Hospitalization)
  Sender: FDA-Public Use
  Company Number: L05-USA-03935-47

PATIENT
  Age: 16 Year
  Sex: 0

DRUGS (2)
  1. ESCITALOPRAM OXALATE [Suspect]
  2. AMPHETAMINE/DEXTROAMPHETAMINE [Suspect]

REACTIONS (1)
  - COMPLETED SUICIDE [None]
